FAERS Safety Report 26184001 (Version 1)
Quarter: 2025Q4

REPORT INFORMATION
  Report Type: Report from Study
  Country: MX (occurrence: MX)
  Receive Date: 20251222
  Receipt Date: 20251222
  Transmission Date: 20260117
  Serious: Yes (Other)
  Sender: BIOVITRUM
  Company Number: MX-AstraZeneca-CH-01015869A

PATIENT
  Age: 8 Month
  Sex: Male
  Weight: 6.34 kg

DRUGS (2)
  1. PALIVIZUMAB [Suspect]
     Active Substance: PALIVIZUMAB
     Indication: Antiviral prophylaxis
     Dosage: 0.85 MILLILITER
     Route: 030
  2. PALIVIZUMAB [Suspect]
     Active Substance: PALIVIZUMAB
     Dosage: 0.95 MILLILITER
     Route: 030
     Dates: start: 20251114, end: 20251114

REACTIONS (2)
  - Cough [Recovering/Resolving]
  - Pneumonia [Recovered/Resolved]

NARRATIVE: CASE EVENT DATE: 20251001
